FAERS Safety Report 7176284-6 (Version None)
Quarter: 2010Q4

REPORT INFORMATION
  Report Type: 
  Country: None (occurrence: None)
  Receive Date: 20101220
  Receipt Date: 20101207
  Transmission Date: 20110411
  Serious: Yes (Hospitalization, Other)
  Sender: FDA-Public Use
  Company Number: US-CELGENEUS-163-21880-10120846

PATIENT
  Sex: Male
  Weight: 85.624 kg

DRUGS (33)
  1. REVLIMID [Suspect]
     Indication: MULTIPLE MYELOMA
     Route: 048
     Dates: start: 20080922, end: 20081212
  2. REVLIMID [Suspect]
     Route: 048
     Dates: start: 20090909, end: 20090917
  3. REVLIMID [Suspect]
     Route: 048
     Dates: start: 20091123, end: 20100317
  4. DEXAMETHASONE [Concomitant]
     Route: 065
     Dates: start: 20080801, end: 20081201
  5. DEXAMETHASONE [Concomitant]
     Route: 065
     Dates: start: 20090910
  6. DEXAMETHASONE [Concomitant]
     Route: 065
     Dates: start: 20091101, end: 20100301
  7. ASPIRIN [Concomitant]
     Route: 065
  8. COUMADIN [Concomitant]
     Route: 065
     Dates: end: 20090701
  9. COUMADIN [Concomitant]
     Route: 065
     Dates: end: 20090701
  10. ATIVAN [Concomitant]
     Indication: NAUSEA
     Route: 065
  11. ATIVAN [Concomitant]
     Indication: VOMITING
  12. COMPAZINE [Concomitant]
     Indication: NAUSEA
     Route: 065
  13. COMPAZINE [Concomitant]
     Indication: VOMITING
  14. ALLOPURINOL [Concomitant]
     Route: 065
  15. PRILOSEC [Concomitant]
     Route: 065
  16. POTASSIUM [Concomitant]
     Route: 065
  17. DARVOCET-N 100 [Concomitant]
     Indication: PAIN
     Dosage: 100
     Route: 065
  18. LASIX [Concomitant]
     Route: 065
  19. PRAVACHOL [Concomitant]
     Route: 065
  20. ISOSORBIDE DINITRATE [Concomitant]
     Route: 065
  21. NITROGLYCERIN [Concomitant]
     Indication: CHEST PAIN
     Route: 060
  22. HYDRALAZINE [Concomitant]
     Route: 065
  23. PROBIOTICS [Concomitant]
     Route: 048
  24. AREDIA [Concomitant]
     Route: 051
     Dates: start: 20091027, end: 20091027
  25. AREDIA [Concomitant]
     Route: 051
     Dates: start: 20100105, end: 20100105
  26. AREDIA [Concomitant]
     Route: 051
     Dates: start: 20100326, end: 20100326
  27. ARANESP [Concomitant]
     Route: 065
     Dates: start: 20100326, end: 20100326
  28. COREG [Concomitant]
     Route: 048
     Dates: start: 20090101
  29. DIGOXIN [Concomitant]
     Route: 065
     Dates: start: 20090101
  30. WHOLE BLOOD [Concomitant]
     Dosage: 6-7 UNITS
     Route: 051
     Dates: start: 20090101, end: 20090101
  31. FLUIDS [Concomitant]
     Route: 051
  32. VASOTEC [Concomitant]
     Route: 065
  33. NEUPOGEN [Concomitant]
     Route: 065
     Dates: start: 20081215, end: 20081215

REACTIONS (14)
  - BONE MARROW FAILURE [None]
  - CARDIAC FAILURE CONGESTIVE [None]
  - CEREBROVASCULAR ACCIDENT [None]
  - CLOSTRIDIAL INFECTION [None]
  - COLITIS [None]
  - DEHYDRATION [None]
  - DIARRHOEA [None]
  - FAILURE TO THRIVE [None]
  - FATIGUE [None]
  - GASTROINTESTINAL HAEMORRHAGE [None]
  - PANCYTOPENIA [None]
  - PERFORMANCE STATUS DECREASED [None]
  - PNEUMONIA [None]
  - RESPIRATORY TRACT INFECTION VIRAL [None]
